FAERS Safety Report 23132151 (Version 1)
Quarter: 2023Q4

REPORT INFORMATION
  Report Type: Report from Study
  Country: BR (occurrence: BR)
  Receive Date: 20231101
  Receipt Date: 20231101
  Transmission Date: 20240110
  Serious: Yes (Other)
  Sender: FDA-Public Use
  Company Number: BR-002147023-NVSC2023BR149142

PATIENT
  Sex: Male
  Weight: 62 kg

DRUGS (2)
  1. ENTRESTO [Suspect]
     Active Substance: SACUBITRIL\VALSARTAN
     Indication: Cardiac failure
     Dosage: 200 MG, BID
     Route: 048
     Dates: start: 202304
  2. HEMAX [Concomitant]
     Indication: Product used for unknown indication
     Dosage: UNK, QW
     Route: 065

REACTIONS (9)
  - Hypertension [Unknown]
  - Shoulder fracture [Unknown]
  - Cardiomegaly [Unknown]
  - Fall [Unknown]
  - Gait disturbance [Unknown]
  - Fatigue [Unknown]
  - Heart alternation [Unknown]
  - Blood glucose abnormal [Recovered/Resolved]
  - Inappropriate schedule of product administration [Unknown]

NARRATIVE: CASE EVENT DATE: 20230101
